FAERS Safety Report 6268642-9 (Version None)
Quarter: 2009Q3

REPORT INFORMATION
  Report Type: 
  Country: None (occurrence: None)
  Receive Date: 20090713
  Receipt Date: 20090713
  Transmission Date: 20100115
  Serious: No
  Sender: FDA-Public Use
  Company Number: None

PATIENT
  Age: 57 Year
  Sex: Female
  Weight: 83.9154 kg

DRUGS (2)
  1. BONIVA [Suspect]
     Dates: start: 20070701, end: 20090103
  2. ACTONEL [Suspect]
     Dates: start: 20090410, end: 20090510

REACTIONS (5)
  - ARTHRALGIA [None]
  - DIZZINESS [None]
  - JAW DISORDER [None]
  - MYALGIA [None]
  - RASH GENERALISED [None]
